FAERS Safety Report 4925800-0 (Version None)
Quarter: 2006Q1

REPORT INFORMATION
  Report Type: 
  Country: None (occurrence: None)
  Receive Date: 20060228
  Receipt Date: 20050323
  Transmission Date: 20060701
  Serious: No
  Sender: FDA-Public Use
  Company Number: US-GLAXOSMITHKLINE-A0551061A

PATIENT
  Age: 38 Year
  Sex: Female

DRUGS (10)
  1. LAMICTAL [Suspect]
     Indication: BIPOLAR DISORDER
     Dosage: 200MG PER DAY
     Route: 048
     Dates: start: 20050201
  2. TRILEPTAL [Concomitant]
  3. RISPERDAL [Concomitant]
  4. CLONAZEPAM [Concomitant]
  5. ADVAIR DISKUS 100/50 [Concomitant]
  6. WELLBUTRIN [Concomitant]
  7. ALPRAZOLAM [Concomitant]
  8. TOPROL-XL [Concomitant]
  9. ALLEGRA [Concomitant]
  10. LIPITOR [Concomitant]

REACTIONS (2)
  - BLOOD PRESSURE INCREASED [None]
  - DIPLOPIA [None]
